FAERS Safety Report 16716379 (Version 1)
Quarter: 2019Q3

REPORT INFORMATION
  Report Type: Spontaneous
  Country: AU (occurrence: AU)
  Receive Date: 20190819
  Receipt Date: 20190819
  Transmission Date: 20191005
  Serious: Yes (Disabling)
  Sender: FDA-Public Use
  Company Number: AU-009507513-1908AUS005162

PATIENT
  Sex: Female

DRUGS (2)
  1. CELESTONE-M [Suspect]
     Active Substance: BETAMETHASONE VALERATE
     Indication: ECZEMA EYELIDS
  2. CELESTONE-M [Suspect]
     Active Substance: BETAMETHASONE VALERATE
     Indication: ECZEMA
     Dosage: UNK
     Route: 061

REACTIONS (6)
  - Fatigue [Unknown]
  - Oedema [Unknown]
  - Weight decreased [Unknown]
  - Insomnia [Unknown]
  - Steroid withdrawal syndrome [Recovering/Resolving]
  - Alopecia [Unknown]

NARRATIVE: CASE EVENT DATE: 20140429
